FAERS Safety Report 9356261 (Version 3)
Quarter: 2013Q3

REPORT INFORMATION
  Report Type: Report from Study
  Country: US (occurrence: US)
  Receive Date: 20130619
  Receipt Date: 20130712
  Transmission Date: 20140515
  Serious: No
  Sender: FDA-Public Use
  Company Number: US-VERTEX PHARMACEUTICALS INC-2013-007197

PATIENT
  Age: 57 Year
  Sex: Female
  Weight: 69 kg

DRUGS (7)
  1. VX-950 (TELAPREVIR) [Suspect]
     Indication: HEPATITIS C
     Dosage: 750 MG, TID
     Route: 048
     Dates: start: 20130609, end: 20130623
  2. RIBAVIRIN [Suspect]
     Indication: HEPATITIS C
     Dosage: 400 MG AM/600 MG PM, BID
     Dates: start: 20130609, end: 20130623
  3. PEGINTRON [Suspect]
     Indication: HEPATITIS C
     Dosage: 96 ?G, QW
     Dates: start: 20130609, end: 20130623
  4. SYNTHROID [Concomitant]
  5. ALPRAZOLAM [Concomitant]
  6. PANTOPRAZOLE [Concomitant]
  7. METOPROLOL [Concomitant]

REACTIONS (7)
  - Dehydration [Unknown]
  - Headache [Not Recovered/Not Resolved]
  - Malaise [Unknown]
  - Fatigue [Not Recovered/Not Resolved]
  - Rash [Not Recovered/Not Resolved]
  - Diarrhoea [Recovered/Resolved]
  - Nausea [Unknown]
